FAERS Safety Report 13044382 (Version 1)
Quarter: 2016Q4

REPORT INFORMATION
  Report Type: Spontaneous
  Country: US (occurrence: US)
  Receive Date: 20161219
  Receipt Date: 20161219
  Transmission Date: 20170207
  Serious: No
  Sender: FDA-Public Use
  Company Number: None

PATIENT
  Age: 29 Year
  Sex: Female
  Weight: 64.35 kg

DRUGS (9)
  1. LUPRON DEPOT [Suspect]
     Active Substance: LEUPROLIDE ACETATE
     Indication: ENDOMETRIOSIS
     Dosage: ?          QUANTITY:1 INJECTION(S);OTHER FREQUENCY:MONTHLY;?
     Route: 030
  2. LUNESTA [Concomitant]
     Active Substance: ESZOPICLONE
  3. NEXPLANON [Concomitant]
     Active Substance: ETONOGESTREL
  4. LAMICTAL [Concomitant]
     Active Substance: LAMOTRIGINE
  5. LUPRON DEPOT [Concomitant]
     Active Substance: LEUPROLIDE ACETATE
  6. IBUPROFEN. [Concomitant]
     Active Substance: IBUPROFEN
  7. VALIUM [Concomitant]
     Active Substance: DIAZEPAM
  8. MORPHINE [Concomitant]
     Active Substance: MORPHINE
  9. ZOLOFT [Concomitant]
     Active Substance: SERTRALINE HYDROCHLORIDE

REACTIONS (2)
  - Myalgia [None]
  - Nausea [None]

NARRATIVE: CASE EVENT DATE: 20161219
